FAERS Safety Report 7287794-5 (Version None)
Quarter: 2011Q1

REPORT INFORMATION
  Report Type: 
  Country: None (occurrence: None)
  Receive Date: 20110208
  Receipt Date: 20110208
  Transmission Date: 20110831
  Serious: Yes (Other)
  Sender: FDA-Public Use
  Company Number: None

PATIENT
  Age: 33 Year
  Sex: Female
  Weight: 86.1834 kg

DRUGS (3)
  1. ZYPREXA [Suspect]
     Dosage: 1 TABLET ONCE DAILY PO
     Route: 048
     Dates: start: 20070701, end: 20091031
  2. LORAZEPAM [Concomitant]
  3. ABILIFY [Suspect]
     Dosage: 1 TABLET ONCE DAILY PO
     Route: 048
     Dates: start: 20070620, end: 20080501

REACTIONS (5)
  - THINKING ABNORMAL [None]
  - WEIGHT INCREASED [None]
  - DEPRESSION [None]
  - INCOHERENT [None]
  - EMOTIONAL DISORDER [None]
